FAERS Safety Report 9619279 (Version 2)
Quarter: 2014Q3

REPORT INFORMATION
  Report Type: Report from Study
  Country: JP (occurrence: JP)
  Receive Date: 20131014
  Receipt Date: 20140703
  Transmission Date: 20150326
  Serious: Yes (Hospitalization)
  Sender: FDA-Public Use
  Company Number: JP-SHIRE-ALL1-2013-06864

PATIENT
  Age: 69 Year
  Sex: Female

DRUGS (18)
  1. 405 (LANTHANUM CARBONATE) [Suspect]
     Active Substance: LANTHANUM CARBONATE
     Dosage: 750 MG, UNKNOWN
     Route: 048
     Dates: start: 20110323, end: 20110804
  2. CALTAN [Suspect]
     Active Substance: CALCIUM CARBONATE
     Indication: HYPERPHOSPHATAEMIA
     Dosage: 3 G, UNKNOWN
     Route: 048
     Dates: start: 20110916, end: 20120813
  3. CALTAN [Suspect]
     Active Substance: CALCIUM CARBONATE
     Dosage: 2 G, UNKNOWN
     Route: 048
     Dates: start: 20090617, end: 20101005
  4. ROCALTROL [Suspect]
     Active Substance: CALCITRIOL
     Indication: PRODUCT USED FOR UNKNOWN INDICATION
     Dosage: 0.5 ?G, UNKNOWN
     Route: 048
     Dates: start: 20100707, end: 20101014
  5. ALFAROL [Concomitant]
     Active Substance: ALFACALCIDOL
     Indication: PRODUCT USED FOR UNKNOWN INDICATION
     Dosage: UNK UNK, UNKNOWN
     Route: 048
     Dates: end: 20090709
  6. ALFAROL [Concomitant]
     Active Substance: ALFACALCIDOL
     Dosage: 0.25 ?G, UNKNOWN
     Route: 048
     Dates: start: 20100120, end: 20100707
  7. ALFAROL [Concomitant]
     Active Substance: ALFACALCIDOL
     Dosage: 0.25 ?G, UNKNOWN
     Route: 048
     Dates: start: 20101014, end: 20101028
  8. ALFAROL [Concomitant]
     Active Substance: ALFACALCIDOL
     Dosage: 0.25 ?G, UNKNOWN
     Route: 048
     Dates: start: 20110112
  9. ROCALTROL [Suspect]
     Active Substance: CALCITRIOL
     Dosage: 0.5 ?G, UNKNOWN
     Route: 048
     Dates: start: 20090417, end: 20090709
  10. CALTAN [Suspect]
     Active Substance: CALCIUM CARBONATE
     Dosage: 1 G, UNKNOWN
     Route: 048
     Dates: start: 20101006, end: 20110322
  11. PLAVIX [Concomitant]
     Active Substance: CLOPIDOGREL BISULFATE
     Indication: PRODUCT USED FOR UNKNOWN INDICATION
     Dosage: 25 MG, UNKNOWN
     Route: 048
  12. EPOGIN [Concomitant]
     Indication: PRODUCT USED FOR UNKNOWN INDICATION
     Dosage: 6000 IU, 1X/WEEK
     Route: 042
  13. 405 (LANTHANUM CARBONATE) [Suspect]
     Active Substance: LANTHANUM CARBONATE
     Indication: HYPERPHOSPHATAEMIA
     Dosage: 1500 MG, UNKNOWN
     Route: 048
     Dates: start: 20110805, end: 20120813
  14. 405 (LANTHANUM CARBONATE) [Suspect]
     Active Substance: LANTHANUM CARBONATE
     Dosage: 500 MG, 1X/DAY:QD
     Route: 048
     Dates: start: 20090617, end: 20110322
  15. CALTAN [Suspect]
     Active Substance: CALCIUM CARBONATE
     Dosage: 4 G, UNKNOWN
     Route: 048
     Dates: end: 20090616
  16. CALTAN [Suspect]
     Active Substance: CALCIUM CARBONATE
     Dosage: 1.5 G, UNKNOWN
     Route: 048
     Dates: start: 20110323, end: 20110915
  17. BLOSTAR M [Concomitant]
     Indication: PRODUCT USED FOR UNKNOWN INDICATION
     Dosage: 20 MG, UNKNOWN
     Route: 048
  18. NORVASC [Concomitant]
     Active Substance: AMLODIPINE BESYLATE
     Indication: PRODUCT USED FOR UNKNOWN INDICATION
     Dosage: 5 MG, UNKNOWN
     Route: 048

REACTIONS (1)
  - Peritonitis [Recovered/Resolved]

NARRATIVE: CASE EVENT DATE: 20120814
